FAERS Safety Report 4495044-8 (Version None)
Quarter: 2004Q4

REPORT INFORMATION
  Report Type: 
  Country: None (occurrence: None)
  Receive Date: 20041104
  Receipt Date: 20041011
  Transmission Date: 20050328
  Serious: Yes (Death)
  Sender: FDA-Public Use
  Company Number: M2004-1630

PATIENT
  Age: 64 Year
  Sex: Male

DRUGS (4)
  1. ATENOLOL [Suspect]
     Dosage: 25MG DAILY
     Dates: start: 20040816
  2. DIAZEPAM [Suspect]
     Indication: DEPRESSION
     Dosage: 2.5-5MG DAILY
     Dates: start: 19640101
  3. CIPRALEX (ESCITALOPRAM) [Suspect]
     Indication: DEPRESSION
     Dosage: 10-20MG DAILY
     Dates: start: 20040806
  4. SIMVASTATIN [Concomitant]

REACTIONS (4)
  - COMPLETED SUICIDE [None]
  - DRUG WITHDRAWAL SYNDROME [None]
  - INJURY ASPHYXIATION [None]
  - MULTIPLE DRUG OVERDOSE [None]
